FAERS Safety Report 4374115-0 (Version None)
Quarter: 2004Q2

REPORT INFORMATION
  Report Type: 
  Country: None (occurrence: None)
  Receive Date: 20040608
  Receipt Date: 20040608
  Transmission Date: 20050107
  Serious: Yes (Other)
  Sender: FDA-Public Use
  Company Number: None

PATIENT
  Age: 63 Year
  Sex: Female
  Weight: 109.3169 kg

DRUGS (1)
  1. GLUCOVANCE [Suspect]
     Dosage: 5/500  1 PO BID
     Route: 048
     Dates: start: 20040530

REACTIONS (1)
  - BLOOD GLUCOSE INCREASED [None]
